FAERS Safety Report 21855065 (Version 5)
Quarter: 2023Q2

REPORT INFORMATION
  Report Type: Spontaneous
  Country: US (occurrence: US)
  Receive Date: 20230112
  Receipt Date: 20230516
  Transmission Date: 20230721
  Serious: Yes (Other)
  Sender: FDA-Public Use
  Company Number: US-PFIZER INC-PV202300006395

PATIENT
  Age: 58 Year
  Sex: Male

DRUGS (2)
  1. INLYTA [Suspect]
     Active Substance: AXITINIB
     Dosage: 10 MG, DAILY
  2. INLYTA [Suspect]
     Active Substance: AXITINIB
     Dosage: 5 MG, 1X/DAY
     Dates: end: 202305

REACTIONS (9)
  - Blood pressure systolic increased [Recovering/Resolving]
  - Off label use [Unknown]
  - Diarrhoea [Unknown]
  - Speech disorder [Unknown]
  - Vocal cord disorder [Unknown]
  - Gastric disorder [Unknown]
  - Pain in extremity [Recovering/Resolving]
  - Limb discomfort [Recovering/Resolving]
  - Gait disturbance [Recovering/Resolving]
